FAERS Safety Report 5234593-1 (Version None)
Quarter: 2007Q1

REPORT INFORMATION
  Report Type: 
  Country: None (occurrence: None)
  Receive Date: 20070209
  Receipt Date: 20070205
  Transmission Date: 20070707
  Serious: Yes (Other)
  Sender: FDA-Public Use
  Company Number: US-JNJFOC-20070201294

PATIENT
  Age: 66 Year
  Sex: Female
  Weight: 122.47 kg

DRUGS (4)
  1. TYLENOL (CAPLET) [Suspect]
  2. TYLENOL (CAPLET) [Suspect]
     Indication: PAIN
  3. BENICAR [Concomitant]
     Indication: CARDIAC DISORDER
  4. INSULIN [Concomitant]
     Indication: DIABETES MELLITUS

REACTIONS (1)
  - BLOOD PRESSURE INCREASED [None]
